FAERS Safety Report 6039948-3 (Version None)
Quarter: 2009Q1

REPORT INFORMATION
  Report Type: 
  Country: None (occurrence: None)
  Receive Date: 20090116
  Receipt Date: 20071213
  Transmission Date: 20090719
  Serious: No
  Sender: FDA-Public Use
  Company Number: US-BRISTOL-MYERS SQUIBB COMPANY-13956958

PATIENT
  Age: 21 Year
  Sex: Male

DRUGS (1)
  1. ABILIFY [Suspect]
     Indication: BIPOLAR I DISORDER
     Dosage: INCREASED TO 10 MG 1 WEEK AFTER STARTING THERAPY, FROM  03-OCT INCREASED TO 15 MG + LATER STOPPED
     Route: 048
     Dates: start: 20070604, end: 20071026

REACTIONS (1)
  - STOMATITIS [None]
